FAERS Safety Report 7298913-9 (Version None)
Quarter: 2011Q1

REPORT INFORMATION
  Report Type: 
  Country: None (occurrence: None)
  Receive Date: 20110217
  Receipt Date: 20110206
  Transmission Date: 20110831
  Serious: Yes (Hospitalization)
  Sender: FDA-Public Use
  Company Number: PHHY2011IL09739

PATIENT
  Age: 84 Year
  Sex: Female

DRUGS (1)
  1. SANDOSTATIN LAR [Suspect]
     Indication: ACROMEGALY
     Dosage: 20 MG, EVERY 28 DAYS
     Dates: start: 20090323

REACTIONS (2)
  - ASTHENIA [None]
  - ARRHYTHMIA [None]
